FAERS Safety Report 8236080-5 (Version None)
Quarter: 2012Q1

REPORT INFORMATION
  Report Type: 
  Country: None (occurrence: None)
  Receive Date: 20120327
  Receipt Date: 20120317
  Transmission Date: 20120608
  Serious: Yes (Other)
  Sender: FDA-Public Use
  Company Number: US-JNJCP-30000096072

PATIENT
  Age: 61 Year
  Sex: Female
  Weight: 59 kg

DRUGS (5)
  1. CALCIUM CARBONATE [Concomitant]
     Indication: MILK ALLERGY
     Dosage: FOUR PILLS PER DAY SINCE YEARS
  2. OVER THE COUNTER VITAMINS [Concomitant]
     Indication: VITAMIN SUPPLEMENTATION
     Dosage: ONCE DAILY
  3. OTC VITAMINS [Concomitant]
     Indication: VITAMIN SUPPLEMENTATION
     Dosage: ONE PILL PER DAY SINCE YEARS
  4. CORTAID UNSPECIFIED USA CRTGENUS [Suspect]
     Indication: RASH
     Dosage: MORE THAN A DIME SIZE AMOUNT TWO TIMES
     Route: 061
     Dates: start: 20120309, end: 20120309
  5. NEUTROGENA COSMETICS UNSPECIFIED USA NGCSUNUS [Suspect]
     Indication: PRODUCT USED FOR UNKNOWN INDICATION
     Dosage: APPLICATION ON LIPS ONCE DAILY FOR TEN DAYS.
     Route: 061
     Dates: end: 20120317

REACTIONS (5)
  - DRUG INEFFECTIVE [None]
  - APPLICATION SITE DRYNESS [None]
  - SKIN CANCER [None]
  - APPLICATION SITE RASH [None]
  - APPLICATION SITE EXFOLIATION [None]
